FAERS Safety Report 14945686 (Version 1)
Quarter: 2018Q2

REPORT INFORMATION
  Report Type: Spontaneous
  Country: IT (occurrence: IT)
  Receive Date: 20180529
  Receipt Date: 20180529
  Transmission Date: 20180711
  Serious: Yes (Death, Hospitalization, Other)
  Sender: FDA-Public Use
  Company Number: IT-SUN PHARMACEUTICAL INDUSTRIES LTD-2018RR-174050

PATIENT
  Sex: Male

DRUGS (14)
  1. ETHAMBUTOL [Suspect]
     Active Substance: ETHAMBUTOL HYDROCHLORIDE
     Indication: MYCOBACTERIAL INFECTION
  2. RITONAVIR. [Suspect]
     Active Substance: RITONAVIR
     Indication: HIV INFECTION
     Dosage: 100 MG, DAILY
     Route: 065
  3. MOXIFLOXACIN. [Suspect]
     Active Substance: MOXIFLOXACIN
     Indication: LEISHMANIASIS
     Dosage: ()
     Route: 065
  4. MOXIFLOXACIN. [Suspect]
     Active Substance: MOXIFLOXACIN
     Indication: MYCOBACTERIAL INFECTION
  5. ETHAMBUTOL [Suspect]
     Active Substance: ETHAMBUTOL HYDROCHLORIDE
     Indication: LEISHMANIASIS
     Dosage: 1200 MG, QD
     Route: 065
  6. DARUNAVIR [Suspect]
     Active Substance: DARUNAVIR
     Indication: HIV INFECTION
     Dosage: 600 MG, DAILY
     Route: 048
  7. CLARITHROMYCIN. [Suspect]
     Active Substance: CLARITHROMYCIN
     Indication: MYCOBACTERIAL INFECTION
  8. RIFABUTIN. [Suspect]
     Active Substance: RIFABUTIN
     Indication: LEISHMANIASIS
     Dosage: 150 MG
     Route: 065
  9. ATOVAQUONE. [Concomitant]
     Active Substance: ATOVAQUONE
     Indication: PRODUCT USED FOR UNKNOWN INDICATION
     Dosage: 750 MG
     Route: 005
  10. CLARITHROMYCIN. [Suspect]
     Active Substance: CLARITHROMYCIN
     Indication: LEISHMANIASIS
     Dosage: 500 MG, BID
     Route: 065
  11. DOLUTEGRAVIR [Suspect]
     Active Substance: DOLUTEGRAVIR
     Indication: HIV INFECTION
     Dosage: 50 MG
     Route: 065
  12. AMPHOTERICIN B. [Suspect]
     Active Substance: AMPHOTERICIN B
     Indication: MYCOBACTERIAL INFECTION
     Dosage: ()
     Route: 065
  13. RIFABUTIN. [Suspect]
     Active Substance: RIFABUTIN
     Indication: MYCOBACTERIAL INFECTION
  14. AMPHOTERICIN B. [Suspect]
     Active Substance: AMPHOTERICIN B
     Indication: LEISHMANIASIS

REACTIONS (5)
  - Drug level decreased [Unknown]
  - Leishmaniasis [Fatal]
  - Chylothorax [Fatal]
  - Mycobacterial infection [Fatal]
  - Ascites [Fatal]
